FAERS Safety Report 16162902 (Version 2)
Quarter: 2019Q4

REPORT INFORMATION
  Report Type: Report from Study
  Country: CZ (occurrence: CZ)
  Receive Date: 20190405
  Receipt Date: 20191120
  Transmission Date: 20200122
  Serious: Yes (Hospitalization)
  Sender: FDA-Public Use
  Company Number: CZ-ROCHE-2274663

PATIENT
  Age: 65 Year
  Sex: Male
  Weight: 95 kg

DRUGS (7)
  1. NEOTIGASON [Concomitant]
     Active Substance: ACITRETIN
     Route: 048
     Dates: start: 20190306
  2. CLOBEX [CLOBETASOL PROPIONATE] [Concomitant]
     Dosage: 500 OTHER
     Route: 061
     Dates: start: 20190205
  3. ELOCOM [Concomitant]
     Active Substance: MOMETASONE FUROATE
     Route: 061
     Dates: start: 20190205
  4. ATEZOLIZUMAB. [Suspect]
     Active Substance: ATEZOLIZUMAB
     Indication: RENAL CELL CARCINOMA
     Dosage: MOST RECENT DOSE OF BLINDED ATEZOLIZUMAB: 05/FEB/2019 AT 11:50
     Route: 042
     Dates: start: 20180820
  5. DERMOVATE [Concomitant]
     Active Substance: CLOBETASOL
     Route: 061
     Dates: start: 20190205
  6. WARFARIN [Concomitant]
     Active Substance: WARFARIN
     Dosage: FOR NOT FOR RENAL CELL CARCINOMA
     Route: 048
     Dates: start: 20180716
  7. AULIN [Concomitant]
     Active Substance: NIMESULIDE
     Route: 048
     Dates: start: 20190225

REACTIONS (1)
  - Dermatitis psoriasiform [Recovered/Resolved]

NARRATIVE: CASE EVENT DATE: 20190226
